FAERS Safety Report 12888618 (Version 1)
Quarter: 2016Q4

REPORT INFORMATION
  Report Type: Spontaneous
  Country: IT (occurrence: IT)
  Receive Date: 20161027
  Receipt Date: 20161027
  Transmission Date: 20170207
  Serious: Yes (Other)
  Sender: FDA-Public Use
  Company Number: PHHY2016IT141912

PATIENT
  Age: 77 Year
  Sex: Female
  Weight: 70 kg

DRUGS (4)
  1. AFINITOR [Suspect]
     Active Substance: EVEROLIMUS
     Indication: BREAST CANCER METASTATIC
     Dosage: 10 MG, QD (DAILY)
     Route: 048
     Dates: start: 20160728
  2. BLOPRESS [Concomitant]
     Active Substance: CANDESARTAN CILEXETIL
     Indication: HYPERTENSION
     Dosage: 4 MG, QD
     Route: 048
     Dates: start: 20160101, end: 20161003
  3. AFINITOR [Suspect]
     Active Substance: EVEROLIMUS
     Dosage: 5 MG, QD
     Route: 048
     Dates: start: 20160905, end: 20160919
  4. EXEMESTANE. [Concomitant]
     Active Substance: EXEMESTANE
     Indication: BREAST CANCER METASTATIC
     Dosage: 1 DF, QD
     Route: 048
     Dates: start: 20160728, end: 20160919

REACTIONS (7)
  - Cough [Unknown]
  - Pneumonitis [Recovered/Resolved]
  - Pneumonitis [Recovered/Resolved]
  - Rash [Recovered/Resolved]
  - Bronchiolitis [Unknown]
  - Lung consolidation [Unknown]
  - Rash [Recovered/Resolved]

NARRATIVE: CASE EVENT DATE: 20160816
